FAERS Safety Report 9684504 (Version 1)
Quarter: 2013Q4

REPORT INFORMATION
  Report Type: Spontaneous
  Country: JP (occurrence: None)
  Receive Date: 20131108
  Receipt Date: 20131108
  Transmission Date: 20140711
  Serious: Yes (Other)
  Sender: FDA-Public Use
  Company Number: JP-RRD-13-00033

PATIENT
  Age: 6 Year
  Sex: Male

DRUGS (2)
  1. DACTINOMYCIN [Suspect]
     Indication: NEPHROBLASTOMA
  2. VINCRISTINE [Suspect]

REACTIONS (1)
  - Hepatic lesion [None]
